FAERS Safety Report 5409502-2 (Version None)
Quarter: 2007Q3

REPORT INFORMATION
  Report Type: 
  Country: None (occurrence: None)
  Receive Date: 20070809
  Receipt Date: 20070730
  Transmission Date: 20080115
  Serious: Yes (Other)
  Sender: FDA-Public Use
  Company Number: US-AMGEN-US237264

PATIENT
  Age: 51 Year
  Sex: Male

DRUGS (4)
  1. SENSIPAR [Suspect]
     Indication: DRUG USE FOR UNKNOWN INDICATION
     Route: 065
  2. UNSPECIFIED NON-STEROIDAL ANTI-INFLAMMATORY AGENT [Suspect]
     Route: 065
  3. CALCITRIOL [Concomitant]
     Route: 065
  4. K-PHOS NEUTRAL [Concomitant]
     Route: 065

REACTIONS (2)
  - BLOOD CREATININE INCREASED [None]
  - HYPERCALCIURIA [None]
